FAERS Safety Report 10588325 (Version 2)
Quarter: 2014Q4

REPORT INFORMATION
  Report Type: Report from Study
  Country: IT (occurrence: IT)
  Receive Date: 20141117
  Receipt Date: 20141117
  Transmission Date: 20150529
  Serious: Yes (Hospitalization)
  Sender: FDA-Public Use
  Company Number: IT-ABBVIE-11P-083-0875248-03

PATIENT
  Age: 26 Year
  Sex: Female
  Weight: 47 kg

DRUGS (4)
  1. DELTACORTENE [Concomitant]
     Active Substance: PREDNISONE
     Indication: CROHN^S DISEASE
     Dosage: 40 MG WITH PROGRESSIVE TAPERING
     Dates: start: 20090928
  2. DELTACORTENE [Concomitant]
     Active Substance: PREDNISONE
     Indication: CROHN^S DISEASE
     Dosage: 40 MG WITH PROGRESSIVE TAPERING
     Dates: start: 20091115
  3. HUMIRA [Suspect]
     Active Substance: ADALIMUMAB
     Indication: CROHN^S DISEASE
     Route: 058
     Dates: start: 20090410, end: 20090410
  4. HUMIRA [Suspect]
     Active Substance: ADALIMUMAB
     Route: 058
     Dates: end: 20100820

REACTIONS (2)
  - Crohn^s disease [Recovered/Resolved]
  - Postoperative fever [Recovered/Resolved]

NARRATIVE: CASE EVENT DATE: 20110221
